FAERS Safety Report 5604335-6 (Version None)
Quarter: 2008Q1

REPORT INFORMATION
  Report Type: 
  Country: None (occurrence: None)
  Receive Date: 20080128
  Receipt Date: 20080123
  Transmission Date: 20080703
  Serious: Yes (Hospitalization)
  Sender: FDA-Public Use
  Company Number: B0504858A

PATIENT
  Age: 77 Year
  Sex: Female

DRUGS (10)
  1. VALTREX [Suspect]
     Indication: HERPES ZOSTER
     Dosage: 3000MG PER DAY
     Route: 048
     Dates: start: 20080115, end: 20080118
  2. CANDESARTAN CILEXETIL [Concomitant]
     Route: 048
  3. LOXONIN [Concomitant]
     Route: 065
  4. SELBEX [Concomitant]
     Route: 048
  5. SIMVASTATIN [Concomitant]
     Route: 048
  6. NORVASC [Concomitant]
     Route: 048
  7. JUVELA [Concomitant]
     Route: 048
  8. UNKNOWN DRUG [Concomitant]
     Route: 048
  9. CARNACULIN [Concomitant]
     Route: 048
  10. CYANOCOBALAMIN [Concomitant]
     Route: 065

REACTIONS (2)
  - ANURIA [None]
  - RENAL FAILURE ACUTE [None]
